FAERS Safety Report 5662621-8 (Version None)
Quarter: 2008Q1

REPORT INFORMATION
  Report Type: 
  Country: None (occurrence: None)
  Receive Date: 20080313
  Receipt Date: 20080307
  Transmission Date: 20080703
  Serious: Yes (Hospitalization)
  Sender: FDA-Public Use
  Company Number: IT-BAYER-200814412GPV

PATIENT
  Age: 82 Year
  Sex: Female

DRUGS (6)
  1. ASPIRIN [Suspect]
     Indication: ARTHRALGIA
     Route: 048
     Dates: start: 20071101, end: 20080202
  2. DELTA-CORTEF [Suspect]
     Indication: RHEUMATOID ARTHRITIS
     Route: 048
     Dates: start: 20071118, end: 20071125
  3. DELTA-CORTEF [Suspect]
     Route: 048
     Dates: start: 20071126, end: 20071215
  4. DELTA-CORTEF [Suspect]
     Route: 048
     Dates: start: 20071115, end: 20071117
  5. AULIN (NIMESULIDE) [Suspect]
     Indication: ARTHRALGIA
     Route: 048
     Dates: start: 20071101, end: 20080202
  6. ESOPRAL (ESOMEPRAZOLE) [Concomitant]
     Indication: DRUG USE FOR UNKNOWN INDICATION

REACTIONS (4)
  - ANAEMIA [None]
  - GASTRIC ULCER [None]
  - HAEMATEMESIS [None]
  - MELAENA [None]
